FAERS Safety Report 9513467 (Version 1)
Quarter: 2013Q3

REPORT INFORMATION
  Report Type: Spontaneous
  Country: US (occurrence: US)
  Receive Date: 20130910
  Receipt Date: 20130910
  Transmission Date: 20140515
  Serious: No
  Sender: FDA-Public Use
  Company Number: US-TARO-2013P1003619

PATIENT
  Age: 63 Year
  Sex: Female
  Weight: 70.31 kg

DRUGS (3)
  1. WARFARIN SODIUM TABLETS USP 5MG [Suspect]
     Indication: PULMONARY EMBOLISM
     Route: 048
     Dates: start: 201209
  2. WARFARIN SODIUM TABLETS USP 5MG [Suspect]
     Indication: PULMONARY EMBOLISM
     Route: 048
     Dates: start: 201209
  3. UNSPECIFIED MEDICATIONS [Concomitant]

REACTIONS (1)
  - Sunburn [Recovered/Resolved]
